FAERS Safety Report 9335037 (Version 2)
Quarter: 2013Q3

REPORT INFORMATION
  Report Type: Spontaneous
  Country: ES (occurrence: ES)
  Receive Date: 20130606
  Receipt Date: 20130927
  Transmission Date: 20140515
  Serious: Yes (Other)
  Sender: FDA-Public Use
  Company Number: ES-ALLERGAN-1307885US

PATIENT
  Age: 89 Year
  Sex: Male
  Weight: 73 kg

DRUGS (1)
  1. GANFORT [Suspect]
     Indication: GLAUCOMA
     Dosage: 2 DF, QD
     Route: 047
     Dates: start: 20120630, end: 20120702

REACTIONS (1)
  - Asthma [Recovered/Resolved]
